FAERS Safety Report 15745869 (Version 1)
Quarter: 2018Q4

REPORT INFORMATION
  Report Type: Report from Study
  Country: IN (occurrence: IN)
  Receive Date: 20181220
  Receipt Date: 20181220
  Transmission Date: 20190205
  Serious: Yes (Other)
  Sender: FDA-Public Use
  Company Number: PHHY2017IN104701

PATIENT
  Age: 73 Year
  Sex: Male

DRUGS (3)
  1. SPEXIB [Suspect]
     Active Substance: CERITINIB
     Dosage: 450 MG, QD
     Route: 048
     Dates: start: 20170619, end: 20170729
  2. SPEXIB [Suspect]
     Active Substance: CERITINIB
     Indication: NON-SMALL CELL LUNG CANCER
     Dosage: 600 MG, QD
     Route: 048
     Dates: start: 20161121, end: 20170618
  3. SPEXIB [Suspect]
     Active Substance: CERITINIB
     Dosage: 450 UNK, UNK
     Route: 048
     Dates: start: 20170815

REACTIONS (4)
  - Vertigo [Unknown]
  - Heart rate irregular [Unknown]
  - Poisoning [Unknown]
  - Blood creatinine increased [Unknown]

NARRATIVE: CASE EVENT DATE: 20170619
